FAERS Safety Report 5387562-5 (Version None)
Quarter: 2007Q3

REPORT INFORMATION
  Report Type: 
  Country: None (occurrence: None)
  Receive Date: 20070711
  Receipt Date: 20070711
  Transmission Date: 20080115
  Serious: Yes (Life-Threatening, Hospitalization)
  Sender: FDA-Public Use
  Company Number: None

PATIENT
  Sex: Female
  Weight: 90.7194 kg

DRUGS (1)
  1. DIOVAN [Suspect]
     Indication: HYPERTENSION
     Dosage: 1X A DAY
     Dates: start: 20040301, end: 20070701

REACTIONS (10)
  - ARTHRALGIA [None]
  - ASTHMA [None]
  - BRONCHITIS [None]
  - DRUG DOSE OMISSION [None]
  - DRY SKIN [None]
  - FATIGUE [None]
  - HYPOAESTHESIA [None]
  - HYPOTHYROIDISM [None]
  - INSOMNIA [None]
  - OEDEMA PERIPHERAL [None]
